FAERS Safety Report 4450724-5 (Version None)
Quarter: 2004Q3

REPORT INFORMATION
  Report Type: 
  Country: None (occurrence: None)
  Receive Date: 20040914
  Receipt Date: 20040914
  Transmission Date: 20050211
  Serious: Yes (Other)
  Sender: FDA-Public Use
  Company Number: None

PATIENT
  Sex: Male
  Weight: 113.3993 kg

DRUGS (2)
  1. FUROSEMIDE 40 MG 3 AM AND 2 PM [Suspect]
     Indication: CARDIAC FAILURE CONGESTIVE
     Dosage: 40 MG 3 AM AND 2 PM
     Dates: start: 19990101
  2. LANOXIN [Suspect]
     Indication: ATRIAL FIBRILLATION
     Dosage: .025 MG QD

REACTIONS (3)
  - FEELING ABNORMAL [None]
  - GASTRIC DISORDER [None]
  - PHARMACEUTICAL PRODUCT COMPLAINT [None]
